FAERS Safety Report 8977918 (Version 3)
Quarter: 2013Q2

REPORT INFORMATION
  Report Type: Spontaneous
  Country: US (occurrence: US)
  Receive Date: 20121220
  Receipt Date: 20130604
  Transmission Date: 20140414
  Serious: No
  Sender: FDA-Public Use
  Company Number: US-PFIZER INC-2012321344

PATIENT
  Age: 77 Year
  Sex: Female
  Weight: 90.7 kg

DRUGS (10)
  1. LYRICA [Suspect]
     Indication: NEUROPATHY PERIPHERAL
     Dosage: UNK
     Route: 048
  2. LYRICA [Suspect]
     Dosage: UNK, 2X/DAY
     Route: 048
  3. LYRICA [Suspect]
     Dosage: UNK, 1X/DAY
     Route: 048
  4. LYRICA [Suspect]
     Dosage: 150 MG
     Route: 048
  5. LYRICA [Suspect]
     Dosage: 75 MG, 2X/DAY
     Route: 048
     Dates: start: 2013
  6. ZOLOFT [Suspect]
     Indication: DEPRESSION
     Dosage: 100 MG, 1X/DAY
     Dates: start: 2013
  7. GABAPENTIN [Concomitant]
     Dosage: UNK
  8. ELAVIL [Concomitant]
     Dosage: UNK
  9. HYDROXYCHLOROQUINE [Concomitant]
     Indication: SJOGREN^S SYNDROME
     Dosage: 200 MG, 1X/DAY
  10. TOVIAZ [Concomitant]
     Indication: URINARY INCONTINENCE
     Dosage: 8 MG, 1X/DAY

REACTIONS (5)
  - Drug ineffective [Unknown]
  - Abdominal discomfort [Recovered/Resolved]
  - Nausea [Unknown]
  - Balance disorder [Unknown]
  - Depression [Unknown]
